FAERS Safety Report 4939876-8 (Version None)
Quarter: 2006Q1

REPORT INFORMATION
  Report Type: 
  Country: None (occurrence: None)
  Receive Date: 20060310
  Receipt Date: 20060228
  Transmission Date: 20060701
  Serious: Yes (Disabling)
  Sender: FDA-Public Use
  Company Number: GB-JNJFOC-20060300675

PATIENT
  Age: 46 Year
  Weight: 61 kg

DRUGS (2)
  1. TOPAMAX [Suspect]
     Indication: EPILEPSY
     Route: 048
  2. KEPPRA [Interacting]
     Indication: EPILEPSY
     Route: 048

REACTIONS (5)
  - AFFECT LABILITY [None]
  - CONFUSIONAL STATE [None]
  - COUGH [None]
  - DRUG INTERACTION [None]
  - DYSPNOEA [None]
